FAERS Safety Report 17681877 (Version 1)
Quarter: 2020Q2

REPORT INFORMATION
  Report Type: Spontaneous
  Country: US (occurrence: US)
  Receive Date: 20200417
  Receipt Date: 20200417
  Transmission Date: 20200714
  Serious: Yes (Other)
  Sender: FDA-Public Use
  Company Number: US-EMCURE PHARMACEUTICALS LTD-2020-EPL-000404

PATIENT
  Age: 68 Year
  Sex: Female

DRUGS (1)
  1. ZOLEDRONIC ACID [Suspect]
     Active Substance: ZOLEDRONIC ACID
     Indication: OSTEOPOROSIS
     Dosage: 4 MILLIGRAM

REACTIONS (6)
  - Off label use [Unknown]
  - Scleritis [Recovered/Resolved]
  - Hyphaema [Recovered/Resolved]
  - Iridocyclitis [Recovered/Resolved]
  - Parophthalmia [Recovered/Resolved]
  - Corneal endotheliitis [Recovered/Resolved]
